FAERS Safety Report 4765566-0 (Version None)
Quarter: 2005Q3

REPORT INFORMATION
  Report Type: 
  Country: None (occurrence: None)
  Receive Date: 20050906
  Receipt Date: 20050819
  Transmission Date: 20060218
  Serious: Yes (Death)
  Sender: FDA-Public Use
  Company Number: EWC050845528

PATIENT
  Age: 87 Year
  Sex: Female

DRUGS (7)
  1. FORTEO [Suspect]
  2. LASIX [Concomitant]
  3. HYDROCHLOROTHIAZIDE [Concomitant]
  4. PARACETAMOL [Concomitant]
  5. PREDNISON (PREDNISONE) [Concomitant]
  6. PREDNISOLONE [Concomitant]
  7. FRAXIPARINE (NADROPARIN CALCIUM) [Concomitant]

REACTIONS (2)
  - CEREBROVASCULAR ACCIDENT [None]
  - HEMIPARESIS [None]
